FAERS Safety Report 7485762-1 (Version None)
Quarter: 2011Q2

REPORT INFORMATION
  Report Type: 
  Country: None (occurrence: None)
  Receive Date: 20110517
  Receipt Date: 20091023
  Transmission Date: 20111010
  Serious: Yes (Other)
  Sender: FDA-Public Use
  Company Number: US-BAYER-200936793NA

PATIENT
  Age: 29 Year
  Sex: Male
  Weight: 86.168 kg

DRUGS (33)
  1. SUFENTANIL CITRATE [Concomitant]
     Dosage: 75 ?G, UNK
     Dates: start: 20070118
  2. HEPARIN [Concomitant]
     Dosage: 2700 U, BOLUS
     Route: 042
     Dates: start: 20070118
  3. HEPARIN [Concomitant]
     Dosage: 35000 U, UNK
  4. LIDOCAINE [Concomitant]
     Dosage: 200 MG, UNK
     Route: 042
  5. CEFUROXIME [Concomitant]
     Dosage: 1500 MG, UNK
     Dates: start: 20070118
  6. BIAXIN XL [Concomitant]
     Dosage: 500 MG, UNK
     Route: 048
     Dates: start: 20060119
  7. PHENYLEPHRIN [Concomitant]
     Dosage: 1700 ?G, BOLUS
     Route: 042
     Dates: start: 20070118
  8. PROPOFOL [Concomitant]
     Dosage: 78.05 MG, UNK
     Dates: start: 20070118
  9. AMIDATE [Concomitant]
     Dosage: 20 MG, UNK
     Dates: start: 20070118
  10. PANCURONIUM BROMIDE [Concomitant]
     Dosage: 25 MG, BOLUS
     Route: 042
     Dates: start: 20070118
  11. DOPAMINE HCL [Concomitant]
     Dosage: 1.47 MG,
     Dates: start: 20070118
  12. RED BLOOD CELLS [Concomitant]
     Dosage: 300 ML, UNK
     Route: 042
     Dates: start: 20070117
  13. NOREPINEPHRINE BITARTRATE [Concomitant]
     Dosage: 10.07 ML, UNK
     Dates: start: 20070118
  14. MANNITOL [Concomitant]
     Dosage: 50 G, UNK
     Route: 042
     Dates: start: 20070118
  15. TRASYLOL [Suspect]
     Dosage: 50ML/HOUR, INFUSION
     Route: 042
     Dates: start: 20070118, end: 20070119
  16. ACETYLSALICYLIC ACID SRT [Concomitant]
     Dosage: 325 MG, UNK
     Route: 048
     Dates: start: 20060119
  17. MIDAZOLAM HCL [Concomitant]
     Dosage: 10 MG, UNK
     Dates: start: 20070118
  18. NICARDIPINE HCL [Concomitant]
     Dosage: UNK
     Dates: start: 20070118
  19. PLATELETS [Concomitant]
     Dosage: 615 ML, UNK
     Route: 042
     Dates: start: 20070118
  20. MILRINONE [Concomitant]
     Dosage: 4300 ?G, PER PUMP
     Dates: start: 20070118
  21. TRASYLOL [Suspect]
     Indication: AORTIC SURGERY
     Dosage: 200 ML, PUMP PRIME
     Route: 042
     Dates: start: 20070118, end: 20070119
  22. TRASYLOL [Suspect]
     Dosage: 200 ML, BOLUS
     Route: 042
     Dates: start: 20070118, end: 20070119
  23. LEVAQUIN [Concomitant]
  24. INSULIN [INSULIN] [Concomitant]
     Dosage: 26.18 ML, 1UNIT/ML
     Route: 042
     Dates: start: 20070118
  25. PROTAMINE SULFATE [Concomitant]
     Dosage: 300 MG, UNK
     Route: 042
     Dates: start: 20070118
  26. PHENYLEPHRINE HCL [Concomitant]
     Dosage: 13000 ?G, UNK
     Route: 042
     Dates: start: 20070118
  27. CRYOPRECIPITATES [Concomitant]
     Dosage: 200 ML, UNK
     Route: 042
     Dates: start: 20070117
  28. CATAPRES [Concomitant]
     Dosage: UNK
     Dates: start: 20060119
  29. HEPARIN [Concomitant]
     Dosage: 1000UNITS/ML, 10 ML, PUMP PRIME
     Route: 042
     Dates: start: 20070118
  30. MILRINONE [Concomitant]
     Dosage: 13.87 ML, 20MG/100ML, PER PUMP
     Dates: start: 20070118
  31. SOLU-MEDROL [Concomitant]
     Dosage: 10 ML, PUMP PRIME
     Route: 042
  32. ALBUMIN [ALBUMEN] [Concomitant]
     Dosage: 250 ML, UNK
     Route: 042
     Dates: start: 20070118
  33. PLASMA [Concomitant]
     Dosage: 277 ML, UNK
     Route: 042
     Dates: start: 20070118

REACTIONS (9)
  - FEAR [None]
  - PAIN [None]
  - STRESS [None]
  - ANXIETY [None]
  - CEREBROVASCULAR ACCIDENT [None]
  - UNEVALUABLE EVENT [None]
  - MYOCARDIAL INFARCTION [None]
  - EMOTIONAL DISTRESS [None]
  - INJURY [None]
